FAERS Safety Report 4386026-5 (Version None)
Quarter: 2004Q2

REPORT INFORMATION
  Report Type: 
  Country: None (occurrence: None)
  Receive Date: 20040628
  Receipt Date: 20040623
  Transmission Date: 20050107
  Serious: Yes (Hospitalization)
  Sender: FDA-Public Use
  Company Number: FR-MERCK-0406FRA00100

PATIENT
  Age: 81 Year
  Sex: Female

DRUGS (5)
  1. AMLODIPINE BESYLATE [Concomitant]
     Indication: HYPERTENSION
     Route: 048
  2. ASPIRIN LYSINE [Concomitant]
     Indication: ATRIAL FIBRILLATION
     Route: 048
  3. ASPIRIN LYSINE [Concomitant]
     Indication: ATRIAL FLUTTER
     Route: 048
  4. PRIMAXIN [Suspect]
     Indication: URINARY TRACT INFECTION
     Route: 041
     Dates: start: 20040318, end: 20040324
  5. PAROXETINE HYDROCHLORIDE [Concomitant]
     Indication: DEPRESSION
     Route: 048

REACTIONS (5)
  - ALANINE AMINOTRANSFERASE INCREASED [None]
  - ASPARTATE AMINOTRANSFERASE INCREASED [None]
  - BLOOD AMYLASE INCREASED [None]
  - GAMMA-GLUTAMYLTRANSFERASE INCREASED [None]
  - LIPASE INCREASED [None]
